FAERS Safety Report 7477169-8 (Version None)
Quarter: 2011Q2

REPORT INFORMATION
  Report Type: 
  Country: None (occurrence: None)
  Receive Date: 20110512
  Receipt Date: 20110215
  Transmission Date: 20111010
  Serious: No
  Sender: FDA-Public Use
  Company Number: US-NOVEN-11US001799

PATIENT
  Sex: Male

DRUGS (2)
  1. DAYTRANA [Suspect]
     Dosage: 10 MG, UNKNOWN
     Route: 062
     Dates: start: 20060101
  2. DAYTRANA [Suspect]
     Indication: ATTENTION DEFICIT/HYPERACTIVITY DISORDER
     Dosage: 20 MG, QD
     Route: 062
     Dates: start: 20060101

REACTIONS (4)
  - INCORRECT DOSE ADMINISTERED [None]
  - PRODUCT QUALITY ISSUE [None]
  - DRUG DOSE OMISSION [None]
  - ABNORMAL BEHAVIOUR [None]
